FAERS Safety Report 8292188-X (Version None)
Quarter: 2012Q2

REPORT INFORMATION
  Report Type: 
  Country: None (occurrence: None)
  Receive Date: 20120417
  Receipt Date: 20120411
  Transmission Date: 20120825
  Serious: Yes (Hospitalization, Other)
  Sender: FDA-Public Use
  Company Number: BR-PFIZER INC-2012091393

PATIENT
  Age: 66 Year
  Sex: Female

DRUGS (9)
  1. TEGRETOL [Concomitant]
     Dosage: 1/4 TABLET DAILY
  2. TEGRETOL [Concomitant]
     Indication: NEURITIS CRANIAL
     Dosage: 3 TABLETS DAILY
  3. BISOPROLOL FUMARATE [Concomitant]
     Indication: BLOOD PRESSURE MANAGEMENT
     Dosage: 1 DF, 1X/DAY
     Dates: start: 20090101
  4. CARBAMAZEPINE [Concomitant]
     Dosage: 1/4 TABLET DAILY
  5. LEVOTHYROXINE SODIUM [Concomitant]
     Indication: THYROID THERAPY
     Dosage: 1 DF, 1X/DAY IN THE MORNING
     Dates: start: 20090101
  6. LYRICA [Suspect]
     Indication: NEUROPATHY PERIPHERAL
     Dosage: 75 MG, UNK
  7. LYRICA [Suspect]
     Dosage: 150 MG, UNK
     Route: 048
  8. LOSARTAN POTASSIUM [Concomitant]
     Indication: BLOOD PRESSURE MANAGEMENT
     Dosage: 0.5 DF, 2X/DAY (HALF TABLET EVERY 12 HOURS)
     Dates: start: 20090101
  9. CARBAMAZEPINE [Concomitant]
     Indication: NEURITIS CRANIAL
     Dosage: 3 TABLETS DAILY

REACTIONS (8)
  - PAIN [None]
  - THYROID CANCER [None]
  - DEPRESSION [None]
  - WHITE BLOOD CELL COUNT INCREASED [None]
  - DRUG EFFECT DECREASED [None]
  - PLATELET COUNT DECREASED [None]
  - NEURITIS CRANIAL [None]
  - BLOOD PRESSURE FLUCTUATION [None]
